FAERS Safety Report 6156985-9 (Version None)
Quarter: 2009Q2

REPORT INFORMATION
  Report Type: 
  Country: None (occurrence: None)
  Receive Date: 20090413
  Receipt Date: 20090413
  Transmission Date: 20091009
  Serious: Yes (Life-Threatening)
  Sender: FDA-Public Use
  Company Number: None

PATIENT
  Age: 15 Year
  Sex: Male
  Weight: 58.9676 kg

DRUGS (2)
  1. XYZAL [Suspect]
     Indication: RHINITIS
     Dosage: 5 MG 1X DAILY PO
     Route: 048
     Dates: start: 20090402, end: 20090406
  2. XYZAL [Suspect]
     Indication: SEASONAL ALLERGY
     Dosage: 5 MG 1X DAILY PO
     Route: 048
     Dates: start: 20090402, end: 20090406

REACTIONS (5)
  - AGITATION [None]
  - CRYING [None]
  - DEPRESSION [None]
  - FEAR [None]
  - SUICIDAL IDEATION [None]
